FAERS Safety Report 21298141 (Version 1)
Quarter: 2022Q3

REPORT INFORMATION
  Report Type: Spontaneous
  Country: CN (occurrence: CN)
  Receive Date: 20220906
  Receipt Date: 20220906
  Transmission Date: 20221027
  Serious: Yes (Hospitalization)
  Sender: FDA-Public Use
  Company Number: CN-BAYER-2022A120105

PATIENT
  Age: 41 Year
  Sex: Female
  Weight: 69.5 kg

DRUGS (2)
  1. NEXAVAR [Suspect]
     Active Substance: SORAFENIB
     Indication: Acute leukaemia
     Dosage: 400 MG, BID
     Route: 048
     Dates: start: 20220805, end: 20220818
  2. CYTARABINE [Suspect]
     Active Substance: CYTARABINE
     Indication: Acute leukaemia
     Dosage: 5000 MG, BID
     Route: 041
     Dates: start: 20220805, end: 20220807

REACTIONS (6)
  - Gingivitis [Recovering/Resolving]
  - Myelosuppression [Recovering/Resolving]
  - Agranulocytosis [Recovering/Resolving]
  - Off label use [None]
  - Gingival pain [Recovering/Resolving]
  - Gingival swelling [Recovering/Resolving]

NARRATIVE: CASE EVENT DATE: 20220805
